FAERS Safety Report 10012655 (Version 1)
Quarter: 2014Q1

REPORT INFORMATION
  Report Type: Spontaneous
  Country: US (occurrence: US)
  Receive Date: 20140314
  Receipt Date: 20140314
  Transmission Date: 20141002
  Serious: Yes (Hospitalization)
  Sender: FDA-Public Use
  Company Number: US-BANPHARM-20142410

PATIENT
  Age: 15 Year
  Sex: Male

DRUGS (1)
  1. IBUPROFEN UNKNOWN PRODUCT [Suspect]
     Dosage: 1000 MG,

REACTIONS (4)
  - Gastric ulcer perforation [Recovered/Resolved]
  - Liver abscess [Recovered/Resolved]
  - Drug abuse [Recovered/Resolved]
  - Inflammatory bowel disease [Recovered/Resolved]
